FAERS Safety Report 8448790-5 (Version None)
Quarter: 2012Q2

REPORT INFORMATION
  Report Type: 
  Country: None (occurrence: None)
  Receive Date: 20120619
  Receipt Date: 20120607
  Transmission Date: 20120825
  Serious: No
  Sender: FDA-Public Use
  Company Number: VE-PFIZER INC-2012129647

PATIENT
  Age: 82 Year
  Sex: Female

DRUGS (2)
  1. LIPITOR [Suspect]
     Dosage: UNK
     Dates: start: 20120101
  2. ZOLOFT [Suspect]
     Dosage: UNK
     Dates: start: 20120101

REACTIONS (1)
  - NO ADVERSE EVENT [None]
